FAERS Safety Report 20953952 (Version 1)
Quarter: 2022Q2

REPORT INFORMATION
  Report Type: Spontaneous
  Country: US (occurrence: US)
  Receive Date: 20220614
  Receipt Date: 20220614
  Transmission Date: 20220721
  Serious: Yes (Hospitalization, Other)
  Sender: FDA-Public Use
  Company Number: US-AUROBINDO-AUR-APL-2022-021851

PATIENT
  Age: 56 Year
  Sex: Male

DRUGS (1)
  1. PHENYTOIN [Suspect]
     Active Substance: PHENYTOIN
     Indication: Seizure
     Dosage: UNK
     Route: 065

REACTIONS (8)
  - Autoimmune thyroiditis [Unknown]
  - Hypothyroidism [Unknown]
  - Suicide attempt [Unknown]
  - Ataxia [Unknown]
  - Agitation [Unknown]
  - Constipation [Unknown]
  - Depression [Unknown]
  - Overdose [Unknown]
